FAERS Safety Report 23898621 (Version 9)
Quarter: 2024Q4

REPORT INFORMATION
  Report Type: Spontaneous
  Country: US (occurrence: US)
  Receive Date: 20240525
  Receipt Date: 20241220
  Transmission Date: 20250115
  Serious: Yes (Other)
  Sender: UNITED THERAPEUTICS
  Company Number: US-UNITED THERAPEUTICS-UNT-2024-015430

PATIENT
  Sex: Male
  Weight: 80.726 kg

DRUGS (43)
  1. REMODULIN [Suspect]
     Active Substance: TREPROSTINIL
     Indication: Pulmonary arterial hypertension
     Dosage: 0.014 ?G/KG (SELF FILL CASSETTE WITH 3 ML, RATE OF 70 MCL PER HOUR), CONTINUING
  2. REMODULIN [Suspect]
     Active Substance: TREPROSTINIL
     Dosage: UNK, CONTINUING
  3. REMODULIN [Suspect]
     Active Substance: TREPROSTINIL
     Indication: Pulmonary arterial hypertension
     Dosage: 0.02 ?G/KG (SELF FILL CASSETTE WITH 3 ML, RATE OF 40 MCL PER HOUR), CONTINUING
  4. REMODULIN [Suspect]
     Active Substance: TREPROSTINIL
     Dosage: 0.012 ?G/KG (SELF-FILL WITH 2.2 ML PER CASSETTE; RATE 24 MCL PER HOUR), CONTINUING
  5. REMODULIN [Suspect]
     Active Substance: TREPROSTINIL
     Dosage: UNK, CONTINUING
  6. REMODULIN [Suspect]
     Active Substance: TREPROSTINIL
     Indication: Pulmonary arterial hypertension
     Dosage: 0.058 ?G/KG (SELF FILLED WITH 2.6 ML PER CASSETTE; PUMP RATE 29MCL PER HOUR), CONTINUING
  7. REMODULIN [Suspect]
     Active Substance: TREPROSTINIL
     Dosage: 0.084 ?G/KG, (SELF FILLED WITH 3 ML PER CASSETTE; PUMP RATE 42MCL PER HOUR), CONTINUING
  8. REMODULIN [Suspect]
     Active Substance: TREPROSTINIL
     Dosage: UNK, CONTINUING
  9. WARFARIN SODIUM [Suspect]
     Active Substance: WARFARIN SODIUM
     Indication: Product used for unknown indication
     Dosage: UNK
  10. LECITHIN\POLOXAMER 407 [Suspect]
     Active Substance: LECITHIN\POLOXAMER 407
     Indication: Infusion site pain
     Dosage: UNK
  11. LIDOCAINE HYDROCHLORIDE [Suspect]
     Active Substance: LIDOCAINE HYDROCHLORIDE
     Indication: Infusion site pain
     Dosage: UNK
  12. OXYCODONE HYDROCHLORIDE [Suspect]
     Active Substance: OXYCODONE HYDROCHLORIDE
     Indication: Infusion site pain
     Dosage: UNK
  13. REVLIMID [Concomitant]
     Active Substance: LENALIDOMIDE
     Indication: Product used for unknown indication
  14. ACYCLOVIR [Concomitant]
     Active Substance: ACYCLOVIR
     Indication: Product used for unknown indication
  15. TUMS [Concomitant]
     Active Substance: CALCIUM CARBONATE
     Indication: Product used for unknown indication
  16. ADEMPAS [Concomitant]
     Active Substance: RIOCIGUAT
     Indication: Product used for unknown indication
  17. UPTRAVI [Concomitant]
     Active Substance: SELEXIPAG
     Indication: Product used for unknown indication
  18. LEVOTHYROXINE [Concomitant]
     Active Substance: LEVOTHYROXINE
     Indication: Product used for unknown indication
  19. FOLIC ACID [Concomitant]
     Active Substance: FOLIC ACID
     Indication: Product used for unknown indication
  20. SODIUM CHLORIDE [Concomitant]
     Active Substance: SODIUM CHLORIDE
     Indication: Product used for unknown indication
  21. ALLOPURINOL [Concomitant]
     Active Substance: ALLOPURINOL
     Indication: Product used for unknown indication
  22. COLESTIPOL HYDROCHLORIDE [Concomitant]
     Active Substance: COLESTIPOL HYDROCHLORIDE
     Indication: Product used for unknown indication
  23. PANTOPRAZOLE SODIUM [Concomitant]
     Active Substance: PANTOPRAZOLE SODIUM
     Indication: Product used for unknown indication
  24. KETAMINE HYDROCHLORIDE [Concomitant]
     Active Substance: KETAMINE HYDROCHLORIDE
     Indication: Product used for unknown indication
  25. LECITHIN [Concomitant]
     Active Substance: LECITHIN
     Indication: Product used for unknown indication
  26. SIMETHICONE (DIMETHICONE) [Concomitant]
     Active Substance: DIMETHICONE
     Indication: Product used for unknown indication
  27. LOMOTIL [Concomitant]
     Active Substance: ATROPINE SULFATE\DIPHENOXYLATE HYDROCHLORIDE
     Indication: Product used for unknown indication
  28. OPSUMIT [Concomitant]
     Active Substance: MACITENTAN
     Indication: Product used for unknown indication
  29. CLONIDINE [Concomitant]
     Active Substance: CLONIDINE
     Indication: Product used for unknown indication
  30. KETOPROFEN [Concomitant]
     Active Substance: KETOPROFEN
     Indication: Product used for unknown indication
  31. OXYGEN [Concomitant]
     Active Substance: OXYGEN
     Indication: Product used for unknown indication
  32. IBUPROFEN [Concomitant]
     Active Substance: IBUPROFEN
     Indication: Product used for unknown indication
  33. GABAPENTIN [Concomitant]
     Active Substance: GABAPENTIN
     Indication: Product used for unknown indication
  34. FEXOFENADINE [Concomitant]
     Active Substance: FEXOFENADINE HYDROCHLORIDE
     Indication: Product used for unknown indication
  35. FUROSEMIDE [Concomitant]
     Active Substance: FUROSEMIDE
     Indication: Product used for unknown indication
  36. AMITRIPTYLINE [Concomitant]
     Active Substance: AMITRIPTYLINE
     Indication: Product used for unknown indication
  37. POLOXAMER [Concomitant]
     Active Substance: POLOXAMER
     Indication: Product used for unknown indication
  38. VITAMIN B COMPLEX WITH C [Concomitant]
     Active Substance: ASCORBIC ACID\CALCIUM PANTOTHENATE\CYANOCOBALAMIN\NIACINAMIDE\PYRIDOXINE HYDROCHLORIDE\RIBOFLAVIN\TH
     Indication: Product used for unknown indication
  39. DAILY MULTIVIT [Concomitant]
     Indication: Product used for unknown indication
  40. TORSEMIDE [Concomitant]
     Active Substance: TORSEMIDE
     Indication: Product used for unknown indication
  41. ELIQUIS [Concomitant]
     Active Substance: APIXABAN
     Indication: Product used for unknown indication
  42. SPIRONOLACTONE [Concomitant]
     Active Substance: SPIRONOLACTONE
     Indication: Product used for unknown indication
  43. MIDODRINE HYDROCHLORIDE [Concomitant]
     Active Substance: MIDODRINE HYDROCHLORIDE
     Indication: Product used for unknown indication

REACTIONS (24)
  - Infusion site thrombosis [Unknown]
  - International normalised ratio increased [Unknown]
  - Infusion site pain [Not Recovered/Not Resolved]
  - Infusion site haemorrhage [Unknown]
  - Device wireless communication issue [Recovered/Resolved]
  - Device malfunction [Recovered/Resolved]
  - Device power source issue [Recovered/Resolved]
  - Device power source issue [Recovered/Resolved]
  - Infusion site infection [Unknown]
  - Therapy non-responder [Unknown]
  - Therapy partial responder [Unknown]
  - Infusion site swelling [Not Recovered/Not Resolved]
  - Infusion site inflammation [Not Recovered/Not Resolved]
  - Infusion site erythema [Not Recovered/Not Resolved]
  - Infusion site pruritus [Unknown]
  - Fatigue [Not Recovered/Not Resolved]
  - Infusion site warmth [Not Recovered/Not Resolved]
  - Arthralgia [Not Recovered/Not Resolved]
  - Device occlusion [Recovered/Resolved]
  - Device connection issue [Recovered/Resolved]
  - Device issue [Recovered/Resolved]
  - Device wireless communication issue [Recovered/Resolved]
  - Device issue [Recovered/Resolved]
  - Device power source issue [Recovered/Resolved]

NARRATIVE: CASE EVENT DATE: 20240101
